FAERS Safety Report 22925109 (Version 4)
Quarter: 2023Q4

REPORT INFORMATION
  Report Type: Report from Study
  Country: US (occurrence: US)
  Receive Date: 20230908
  Receipt Date: 20231101
  Transmission Date: 20240110
  Serious: Yes (Hospitalization)
  Sender: FDA-Public Use
  Company Number: US-AVEO ONCOLOGY-2023-AVEO-US000680

PATIENT
  Age: 67 Year
  Sex: Male
  Weight: 82.5 kg

DRUGS (7)
  1. TIVOZANIB [Suspect]
     Active Substance: TIVOZANIB
     Indication: Renal cell carcinoma
     Dosage: 1.34 MG ONCE DAILY FOR 21 DAYS WITH 7 DAYS OFF TREATMENT (28-DAY CYCLE)
     Route: 048
     Dates: start: 20230525, end: 20230830
  2. TIVOZANIB [Suspect]
     Active Substance: TIVOZANIB
     Dosage: 1.34 MG ONCE DAILY FOR 21 DAYS WITH 7 DAYS OFF TREATMENT (28-DAY CYCLE)
     Route: 048
     Dates: start: 20230914
  3. BENZONATATE [Concomitant]
     Active Substance: BENZONATATE
     Indication: Cough
     Dosage: 100 MG, TID
     Route: 065
     Dates: start: 20230817
  4. PSYLLIUM [Concomitant]
     Active Substance: PLANTAGO SEED
     Indication: Constipation
     Dosage: 3 G, DAILY
     Route: 065
     Dates: start: 20230622
  5. DILTIAZEM [Concomitant]
     Active Substance: DILTIAZEM
     Indication: Supraventricular tachycardia
     Dosage: 240 MG, DAILY
     Route: 065
     Dates: start: 20230324
  6. ATIVAN [Concomitant]
     Active Substance: LORAZEPAM
     Indication: Anxiety
     Dosage: UNK
     Route: 065
  7. PROZAC [Concomitant]
     Active Substance: FLUOXETINE HYDROCHLORIDE
     Indication: Depression
     Dosage: UNK
     Route: 065
     Dates: end: 20230831

REACTIONS (2)
  - Hyponatraemia [Recovered/Resolved]
  - Hyponatraemia [Recovered/Resolved]

NARRATIVE: CASE EVENT DATE: 20230831
